FAERS Safety Report 15660733 (Version 1)
Quarter: 2018Q4

REPORT INFORMATION
  Report Type: Spontaneous
  Country: US (occurrence: US)
  Receive Date: 20181116
  Receipt Date: 20181116
  Transmission Date: 20190205
  Serious: No
  Sender: FDA-Public Use
  Company Number: None

PATIENT
  Age: 27 Year
  Sex: Female

DRUGS (7)
  1. EXCEDRINE [Concomitant]
  2. SUMATRIPTAN. [Concomitant]
     Active Substance: SUMATRIPTAN
  3. IBUPROFEN. [Concomitant]
     Active Substance: IBUPROFEN
  4. ONDANSETRON ODT [Concomitant]
     Active Substance: ONDANSETRON
  5. ALBUTEROL. [Concomitant]
     Active Substance: ALBUTEROL
  6. AMLTRIPTYLINE [Concomitant]
  7. TASIGNA [Suspect]
     Active Substance: NILOTINIB
     Indication: CHRONIC MYELOID LEUKAEMIA
     Dosage: ?          QUANTITY:2 TABLETS;?
     Route: 048
     Dates: start: 20181114

REACTIONS (3)
  - Headache [None]
  - Loss of personal independence in daily activities [None]
  - Cluster headache [None]

NARRATIVE: CASE EVENT DATE: 20181114
